FAERS Safety Report 12163281 (Version 1)
Quarter: 2016Q1

REPORT INFORMATION
  Report Type: Spontaneous
  Country: US (occurrence: None)
  Receive Date: 20160308
  Receipt Date: 20160308
  Transmission Date: 20160526
  Serious: Yes (Hospitalization)
  Sender: FDA-Public Use
  Company Number: None

PATIENT
  Age: 51 Year
  Sex: Male
  Weight: 109.7 kg

DRUGS (5)
  1. CYCLOPHOSPHAMIDE. [Suspect]
     Active Substance: CYCLOPHOSPHAMIDE
     Dates: end: 20160205
  2. MERCAPTOPURINE. [Suspect]
     Active Substance: MERCAPTOPURINE
     Dates: end: 20160218
  3. CYTARABINE. [Suspect]
     Active Substance: CYTARABINE
     Dates: end: 20160215
  4. METHOTREXATE [Suspect]
     Active Substance: METHOTREXATE
     Dates: end: 20160226
  5. ONCASPAR [Suspect]
     Active Substance: PEGASPARGASE
     Dates: end: 20160219

REACTIONS (3)
  - Nausea [None]
  - Vomiting [None]
  - No therapeutic response [None]

NARRATIVE: CASE EVENT DATE: 20160301
